FAERS Safety Report 20516497 (Version 2)
Quarter: 2022Q3

REPORT INFORMATION
  Report Type: Other
  Country: US (occurrence: None)
  Receive Date: 20220225
  Receipt Date: 20220819
  Transmission Date: 20221027
  Serious: Yes (Death)
  Sender: FDA-Public Use
  Company Number: US-ROCHE-3032612

PATIENT

DRUGS (8)
  1. BEVACIZUMAB [Suspect]
     Active Substance: BEVACIZUMAB
     Indication: Ovarian cancer
     Dosage: DAYS 1 AND 15 OF 28 DAYS
     Route: 042
     Dates: start: 20180919, end: 20181112
  2. BEVACIZUMAB [Suspect]
     Active Substance: BEVACIZUMAB
     Indication: Ovarian cancer
  3. BEVACIZUMAB [Suspect]
     Active Substance: BEVACIZUMAB
     Indication: Fallopian tube cancer
  4. BEVACIZUMAB [Suspect]
     Active Substance: BEVACIZUMAB
     Indication: Malignant peritoneal neoplasm
  5. IXABEPILONE [Suspect]
     Active Substance: IXABEPILONE
     Indication: Ovarian cancer
     Dosage: DAYS 1, 8, AND 15 OF A 28-DAY CYCLE.
     Route: 042
     Dates: end: 20181112
  6. IXABEPILONE [Suspect]
     Active Substance: IXABEPILONE
     Indication: Ovarian cancer
  7. IXABEPILONE [Suspect]
     Active Substance: IXABEPILONE
     Indication: Fallopian tube cancer
  8. IXABEPILONE [Suspect]
     Active Substance: IXABEPILONE
     Indication: Malignant peritoneal neoplasm

REACTIONS (1)
  - Acute kidney injury [Fatal]
